FAERS Safety Report 15070298 (Version 2)
Quarter: 2018Q3

REPORT INFORMATION
  Report Type: Report from Study
  Country: HN (occurrence: HN)
  Receive Date: 20180626
  Receipt Date: 20180801
  Transmission Date: 20181010
  Serious: Yes (Hospitalization, Other)
  Sender: FDA-Public Use
  Company Number: HN-ELI_LILLY_AND_COMPANY-HN201806010628

PATIENT
  Age: 40 Year
  Sex: Male
  Weight: 40 kg

DRUGS (1)
  1. CETUXIMAB. [Suspect]
     Active Substance: CETUXIMAB
     Indication: COLORECTAL CANCER
     Dosage: 375 MG/M2, WEEKLY (1/W)
     Route: 042
     Dates: start: 20171018

REACTIONS (6)
  - Gastroenteritis [Not Recovered/Not Resolved]
  - Decreased appetite [Unknown]
  - Haemoglobin decreased [Not Recovered/Not Resolved]
  - Malnutrition [Not Recovered/Not Resolved]
  - Diarrhoea [Unknown]
  - Disease recurrence [Not Recovered/Not Resolved]

NARRATIVE: CASE EVENT DATE: 201805
